FAERS Safety Report 7208534-1 (Version None)
Quarter: 2011Q1

REPORT INFORMATION
  Report Type: 
  Country: None (occurrence: None)
  Receive Date: 20110104
  Receipt Date: 20100727
  Transmission Date: 20110831
  Serious: Yes (Other)
  Sender: FDA-Public Use
  Company Number: US-BAYER-201016332NA

PATIENT
  Sex: Female
  Weight: 55 kg

DRUGS (13)
  1. LORTAB [Concomitant]
     Dates: start: 20081004
  2. OXYCET [Concomitant]
     Dates: start: 20081004
  3. VICODIN [Concomitant]
     Dates: start: 20081004
  4. ALLEGRA [Concomitant]
     Indication: HYPERSENSITIVITY
  5. AMBIEN [Concomitant]
     Dates: start: 20081004
  6. SINGULAIR [Concomitant]
     Indication: HYPERSENSITIVITY
  7. ADVIL [Concomitant]
  8. OCELLA [Suspect]
     Indication: PRODUCT USED FOR UNKNOWN INDICATION
     Route: 048
     Dates: start: 20040101
  9. YASMIN [Suspect]
     Indication: PRODUCT USED FOR UNKNOWN INDICATION
     Route: 048
     Dates: start: 20040115, end: 20081105
  10. COMPAZINE [Concomitant]
     Dates: start: 20081004
  11. YAZ [Suspect]
     Indication: PRODUCT USED FOR UNKNOWN INDICATION
     Dosage: UNK UNK, UNK
     Route: 048
     Dates: start: 20040101
  12. CEFAZOLIN [Concomitant]
     Route: 042
     Dates: start: 20081003, end: 20081003
  13. PERCOCET [Concomitant]
     Dates: start: 20081004

REACTIONS (8)
  - ABDOMINAL PAIN UPPER [None]
  - CHANGE OF BOWEL HABIT [None]
  - ABDOMINAL PAIN [None]
  - FLATULENCE [None]
  - ABDOMINAL DISTENSION [None]
  - CHOLECYSTITIS CHRONIC [None]
  - DIARRHOEA [None]
  - GASTROOESOPHAGEAL REFLUX DISEASE [None]
